FAERS Safety Report 12801320 (Version 1)
Quarter: 2016Q4

REPORT INFORMATION
  Report Type: Spontaneous
  Country: CZ (occurrence: CZ)
  Receive Date: 20161003
  Receipt Date: 20161003
  Transmission Date: 20170207
  Serious: Yes (Hospitalization, Other)
  Sender: FDA-Public Use
  Company Number: CZ-ORION CORPORATION ORION PHARMA-16_00001933

PATIENT
  Age: 60 Year
  Sex: Female

DRUGS (1)
  1. METHOTREXATE. [Suspect]
     Active Substance: METHOTREXATE
     Indication: INFLAMMATORY BOWEL DISEASE
     Dosage: LOW DOSES
     Route: 065

REACTIONS (5)
  - Circulatory collapse [Unknown]
  - Swelling face [Unknown]
  - Hypersensitivity [Unknown]
  - Product use issue [Unknown]
  - Rash [Unknown]
